FAERS Safety Report 19764482 (Version 21)
Quarter: 2023Q2

REPORT INFORMATION
  Report Type: Spontaneous
  Country: CA (occurrence: CA)
  Receive Date: 20210831
  Receipt Date: 20230503
  Transmission Date: 20230721
  Serious: Yes (Other)
  Sender: FDA-Public Use
  Company Number: CA-CELLTRION INC.-2021CA010523

PATIENT

DRUGS (14)
  1. INFLECTRA [Suspect]
     Active Substance: INFLIXIMAB-DYYB
     Indication: Colitis ulcerative
     Dosage: 400 MG, INDUCTION AT 0, 2, 6 WEEKS FOLLOWED BY EVERY 8 WEEKS MAINTENANCE
     Route: 042
     Dates: start: 20210618, end: 20211117
  2. INFLECTRA [Suspect]
     Active Substance: INFLIXIMAB-DYYB
     Dosage: 400 MG, INDUCTION AT 0, 2,6  WEEKS FOLLOWED BY EVERY 8 WEEKS MAINTENANCE
     Route: 042
     Dates: start: 20210628
  3. INFLECTRA [Suspect]
     Active Substance: INFLIXIMAB-DYYB
     Dosage: 400 MG, INDUCTION AT 0, 2, 6 WEEKS FOLLOWED BY EVERY 8 WEEKS MAINTENANCE
     Route: 042
     Dates: start: 20210727
  4. INFLECTRA [Suspect]
     Active Substance: INFLIXIMAB-DYYB
     Dosage: 400 MG, INDUCTION AT 0, 2, 6 WEEKS FOLLOWED BY EVERY 8 WEEKS MAINTENANCE
     Route: 042
     Dates: start: 20210922
  5. INFLECTRA [Suspect]
     Active Substance: INFLIXIMAB-DYYB
     Dosage: 400 MG, INDUCTION AT 0, 2, 6 WEEKS FOLLOWED BY EVERY 8 WEEKS MAINTENANCE
     Route: 042
     Dates: start: 20210922
  6. INFLECTRA [Suspect]
     Active Substance: INFLIXIMAB-DYYB
     Dosage: 400 MG, INDUCTION AT 0, 2, 6 WEEKS FOLLOWED BY EVERY 8 WEEKS MAINTENANCE
     Route: 042
     Dates: start: 20211117
  7. INFLECTRA [Suspect]
     Active Substance: INFLIXIMAB-DYYB
     Dosage: 400 MG, EVERY 4 WEEK, DISCONTINUED
     Route: 042
     Dates: start: 20211218, end: 20220628
  8. INFLECTRA [Suspect]
     Active Substance: INFLIXIMAB-DYYB
     Dosage: 600 MG (SUPPOSED TO RECEIVE 400 MG, EVERY 4 WEEK)
     Route: 042
     Dates: start: 20220112
  9. INFLECTRA [Suspect]
     Active Substance: INFLIXIMAB-DYYB
     Dosage: 400 MG, EVERY 4 WEEK
     Route: 042
     Dates: start: 20220209
  10. INFLECTRA [Suspect]
     Active Substance: INFLIXIMAB-DYYB
     Dosage: 400 MG, EVERY 4 WEEK
     Route: 042
     Dates: start: 20220309
  11. INFLECTRA [Suspect]
     Active Substance: INFLIXIMAB-DYYB
     Dosage: 400 MG, EVERY 4 WEEK
     Route: 042
     Dates: start: 20220406
  12. INFLECTRA [Suspect]
     Active Substance: INFLIXIMAB-DYYB
     Dosage: 400 MG, EVERY 4 WEEK
     Route: 042
     Dates: start: 20220506
  13. INFLECTRA [Suspect]
     Active Substance: INFLIXIMAB-DYYB
     Dosage: 400 MG, EVERY 4 WEEK
     Route: 042
     Dates: start: 20220601
  14. INFLECTRA [Suspect]
     Active Substance: INFLIXIMAB-DYYB
     Dosage: 400 MG, EVERY 4 WEEK
     Route: 042
     Dates: start: 20220628, end: 20220628

REACTIONS (21)
  - Haematochezia [Unknown]
  - Neuroendocrine carcinoma [Recovering/Resolving]
  - Condition aggravated [Recovering/Resolving]
  - Drug ineffective [Unknown]
  - Off label use [Unknown]
  - Off label use [Unknown]
  - Off label use [Unknown]
  - Intentional product use issue [Unknown]
  - Inappropriate schedule of product administration [Unknown]
  - Incorrect dose administered [Unknown]
  - Abdominal pain lower [Unknown]
  - Abdominal discomfort [Not Recovered/Not Resolved]
  - Bowel movement irregularity [Unknown]
  - Bladder spasm [Unknown]
  - Blood pressure increased [Not Recovered/Not Resolved]
  - Colitis [Unknown]
  - Cough [Not Recovered/Not Resolved]
  - Faecal calprotectin increased [Recovering/Resolving]
  - Micturition urgency [Unknown]
  - Pain [Not Recovered/Not Resolved]
  - Pyrexia [Not Recovered/Not Resolved]

NARRATIVE: CASE EVENT DATE: 20210628
